FAERS Safety Report 4578789-0 (Version None)
Quarter: 2005Q1

REPORT INFORMATION
  Report Type: 
  Country: None (occurrence: None)
  Receive Date: 20050209
  Receipt Date: 20050209
  Transmission Date: 20050727
  Serious: No
  Sender: FDA-Public Use
  Company Number: None

PATIENT
  Sex: Male

DRUGS (1)
  1. RITALIN [Suspect]
     Indication: ATTENTION DEFICIT/HYPERACTIVITY DISORDER
     Dosage: PO TID
     Route: 048

REACTIONS (3)
  - AGITATION [None]
  - EUPHORIC MOOD [None]
  - PHARMACEUTICAL PRODUCT COMPLAINT [None]
